FAERS Safety Report 13272067 (Version 1)
Quarter: 2017Q1

REPORT INFORMATION
  Report Type: Spontaneous
  Country: US (occurrence: US)
  Receive Date: 20170224
  Receipt Date: 20170224
  Transmission Date: 20170428
  Serious: No
  Sender: FDA-Public Use
  Company Number: None

PATIENT
  Age: 16 Year
  Sex: Male
  Weight: 74.25 kg

DRUGS (2)
  1. DIFFERIN GEL [Suspect]
     Active Substance: ADAPALENE
     Indication: ACNE
     Dosage: DAILY TOPICAL 1 APPLICATION?
     Route: 061
     Dates: start: 20170222, end: 20170223
  2. DIFFERIN BALANCING CLEANSER [Suspect]
     Active Substance: COSMETICS
     Indication: ACNE
     Dosage: TOPICAL; 1 APPLICATION?
     Route: 061
     Dates: start: 20170222, end: 20170223

REACTIONS (3)
  - Eye swelling [None]
  - Wound [None]
  - Rash [None]

NARRATIVE: CASE EVENT DATE: 20170223
